FAERS Safety Report 4647307-0 (Version None)
Quarter: 2005Q2

REPORT INFORMATION
  Report Type: 
  Country: None (occurrence: None)
  Receive Date: 20050426
  Receipt Date: 20050412
  Transmission Date: 20051028
  Serious: Yes (Other)
  Sender: FDA-Public Use
  Company Number: 2005-04-0831

PATIENT
  Age: 5 Year
  Sex: Male
  Weight: 35 kg

DRUGS (2)
  1. CLARITIN-D [Suspect]
     Indication: HYPERSENSITIVITY
     Dosage: 2.5 MG BID ORAL
     Route: 048
     Dates: start: 20041129, end: 20041130
  2. TRIAMOX (AMOXICILLIN) [Concomitant]

REACTIONS (9)
  - ABNORMAL BEHAVIOUR [None]
  - AGITATION [None]
  - AMNESIA [None]
  - CRYING [None]
  - FEAR [None]
  - HALLUCINATION [None]
  - HALLUCINATION, VISUAL [None]
  - PSYCHOMOTOR HYPERACTIVITY [None]
  - SCREAMING [None]
